FAERS Safety Report 12190077 (Version 1)
Quarter: 2016Q1

REPORT INFORMATION
  Report Type: Spontaneous
  Country: IN (occurrence: IN)
  Receive Date: 20160318
  Receipt Date: 20160318
  Transmission Date: 20160526
  Serious: Yes (Other)
  Sender: FDA-Public Use
  Company Number: IN-ACCORD-038785

PATIENT
  Age: 52 Year
  Sex: Female

DRUGS (4)
  1. METHOTREXATE [Suspect]
     Active Substance: METHOTREXATE
     Indication: POLYMYOSITIS
     Dosage: 10 MG/WEEL DOSE GRADUALLY INCREASING TO 25 MG/WEEK
     Route: 048
     Dates: start: 201303, end: 201310
  2. PREDNISOLONE. [Suspect]
     Active Substance: PREDNISOLONE
     Indication: POLYMYOSITIS
     Dates: start: 201303
  3. HYDROCHLOROTHIAZIDE/TELMISARTAN [Concomitant]
     Indication: HYPERTENSION
     Dosage: TELMISARTAN 80 MG HYDROCHLOROTHIAZIDE 12.5 MG ONCE DAILY
  4. LEVOTHYROXINE. [Concomitant]
     Active Substance: LEVOTHYROXINE
     Indication: HYPOTHYROIDISM
     Dosage: 100 MICROGRAM/DAY

REACTIONS (3)
  - Cellulitis [Unknown]
  - Diabetes mellitus [Recovered/Resolved]
  - Disseminated tuberculosis [Recovered/Resolved]
